FAERS Safety Report 24397493 (Version 1)
Quarter: 2024Q4

REPORT INFORMATION
  Report Type: Spontaneous
  Country: BR (occurrence: BR)
  Receive Date: 20241004
  Receipt Date: 20241004
  Transmission Date: 20250115
  Serious: Yes (Life-Threatening, Other)
  Sender: JOHNSON AND JOHNSON
  Company Number: BR-JNJFOC-20240977359

PATIENT
  Sex: Female

DRUGS (6)
  1. SPRAVATO [Suspect]
     Active Substance: ESKETAMINE
     Indication: Product used for unknown indication
     Dates: start: 2024
  2. SPRAVATO [Suspect]
     Active Substance: ESKETAMINE
     Dosage: 3 VIALS
     Dates: start: 2024
  3. LITHIUM [Concomitant]
     Active Substance: LITHIUM
     Route: 065
  4. ESCITALOPRAM [Concomitant]
     Active Substance: ESCITALOPRAM OXALATE
     Route: 065
  5. LAMOTRIGINE [Concomitant]
     Active Substance: LAMOTRIGINE
     Route: 065
  6. FLUOXETINE [Concomitant]
     Active Substance: FLUOXETINE HYDROCHLORIDE
     Route: 065

REACTIONS (9)
  - Suicidal ideation [Unknown]
  - Alcoholism [Unknown]
  - Blood pressure increased [Recovering/Resolving]
  - Crying [Unknown]
  - Anxiety [Unknown]
  - Confusional state [Unknown]
  - Product dose omission issue [Unknown]
  - Inappropriate affect [Unknown]
  - Helplessness [Unknown]

NARRATIVE: CASE EVENT DATE: 20240101
